FAERS Safety Report 7760480 (Version 16)
Quarter: 2013Q1

REPORT INFORMATION
  Report Type: Spontaneous
  Country: CA (occurrence: CA)
  Receive Date: 20110114
  Receipt Date: 20130207
  Transmission Date: 20140127
  Serious: Yes (Death, Other)
  Sender: FDA-Public Use
  Company Number: PHHY2011CA01371

PATIENT
  Age: 83 Year
  Sex: Female

DRUGS (6)
  1. SANDOSTATIN LAR [Suspect]
     Indication: ACROMEGALY
     Dosage: 40 MG, QMO
     Route: 030
     Dates: start: 20100511
  2. SANDOSTATIN LAR [Suspect]
     Dosage: 40 MG, ONCE A MONTH
     Route: 030
     Dates: start: 20100611
  3. ANTIBIOTICS [Concomitant]
  4. CHEMOTHERAPEUTICS [Concomitant]
  5. RADIOTHERAPY [Concomitant]
  6. HEPARIN [Concomitant]

REACTIONS (17)
  - Death [Fatal]
  - Mass [Unknown]
  - Uterine cancer [Unknown]
  - Hernia [Unknown]
  - Urinary tract infection [Unknown]
  - Visual acuity reduced [Unknown]
  - Blood glucose increased [Not Recovered/Not Resolved]
  - Vomiting [Not Recovered/Not Resolved]
  - Anxiety [Unknown]
  - Depressed mood [Unknown]
  - Pain in extremity [Unknown]
  - Poor quality sleep [Unknown]
  - Memory impairment [Unknown]
  - Weight decreased [Unknown]
  - Nausea [Not Recovered/Not Resolved]
  - Injection site pain [Unknown]
  - Decreased appetite [Unknown]
